FAERS Safety Report 4389037-9 (Version None)
Quarter: 2004Q2

REPORT INFORMATION
  Report Type: 
  Country: None (occurrence: None)
  Receive Date: 20040628
  Receipt Date: 20040614
  Transmission Date: 20050107
  Serious: Yes (Life-Threatening, Hospitalization)
  Sender: FDA-Public Use
  Company Number: 2002086926FR

PATIENT
  Age: 73 Year
  Sex: Male

DRUGS (15)
  1. CAMPTOSAR [Suspect]
     Indication: COLORECTAL CANCER
     Dosage: 300 MG, CYCLIC , DAY, 1 , IV
     Route: 042
     Dates: start: 20011215, end: 20011215
  2. FLUOROURACIL [Suspect]
     Indication: COLORECTAL CANCER
     Dosage: 1700 MG, CYCLIC DAY 1 AND 2 IV
     Route: 042
     Dates: start: 20011215, end: 20011216
  3. FOLINIC ACID(FOLINIC ACID) [Suspect]
     Indication: COLORECTAL CANCER
     Dosage: 400 MG, CYCLIC , DAY 1 AND 2, IV
     Route: 042
     Dates: start: 20011215, end: 20011216
  4. DEBRIDAT ^PARKE-DAVIS^ (TRIMEBUTINE MALEATE) [Concomitant]
  5. FLUCONAZOLE [Concomitant]
  6. OMEPRAZOLE [Concomitant]
  7. SPASFON (PHLOROGLUCINOL, TRIMETHYLPHLOROGLUCINOL) [Concomitant]
  8. OROKEN (CEFIXIME) [Concomitant]
  9. SMECTA (GLUCOSE MONOHYDRATE, ALUMINUM MAGNESIUM SILICATE, ALUMINUM HYD [Concomitant]
  10. DOLIPRANE [Concomitant]
  11. KALEORID [Concomitant]
  12. PRIMPERAN INJ [Concomitant]
  13. SOLU-MEDROL [Concomitant]
  14. ONDANSETRON HYDROCHLORIDE [Concomitant]
  15. ATROPINE [Concomitant]

REACTIONS (7)
  - DEHYDRATION [None]
  - DIARRHOEA [None]
  - HYPOTENSION [None]
  - HYPOVOLAEMIA [None]
  - HYPOVOLAEMIC SHOCK [None]
  - RENAL FAILURE [None]
  - VOMITING [None]
